FAERS Safety Report 8215530-4 (Version None)
Quarter: 2012Q1

REPORT INFORMATION
  Report Type: 
  Country: None (occurrence: None)
  Receive Date: 20120316
  Receipt Date: 20120306
  Transmission Date: 20120608
  Serious: Yes (Death)
  Sender: FDA-Public Use
  Company Number: US-ROCHE-1045633

PATIENT
  Sex: Male
  Weight: 82 kg

DRUGS (5)
  1. OXYCODONE HCL [Concomitant]
     Indication: PAIN
     Dosage: AS REQUIRED
     Route: 048
  2. COREG [Concomitant]
     Indication: CARDIAC FAILURE CONGESTIVE
     Route: 048
  3. DILTIAZEM HCL [Concomitant]
     Indication: CARDIAC FAILURE CONGESTIVE
     Route: 048
  4. COMPAZINE [Concomitant]
     Indication: NAUSEA
     Dosage: AS REQUIRED
     Route: 048
  5. ZELBORAF [Suspect]
     Indication: MALIGNANT MELANOMA
     Route: 048
     Dates: start: 20111121, end: 20120219

REACTIONS (2)
  - MALIGNANT ASCITES [None]
  - DRUG EFFECT DECREASED [None]
